FAERS Safety Report 17248400 (Version 14)
Quarter: 2020Q3

REPORT INFORMATION
  Report Type: Report from Study
  Country: FR (occurrence: FR)
  Receive Date: 20200108
  Receipt Date: 20200719
  Transmission Date: 20201102
  Serious: Yes (Life-Threatening, Hospitalization, Other)
  Sender: FDA-Public Use
  Company Number: FR-BRISTOL-MYERS SQUIBB COMPANY-BMS-2019-116381

PATIENT
  Age: 72 Year
  Sex: Male
  Weight: 75 kg

DRUGS (1)
  1. NIVOLUMAB [Suspect]
     Active Substance: NIVOLUMAB
     Indication: HODGKIN^S DISEASE
     Dosage: 240 MILLIGRAM
     Route: 065
     Dates: start: 20190522

REACTIONS (6)
  - Cardio-respiratory arrest [Recovered/Resolved]
  - Quadriparesis [Not Recovered/Not Resolved]
  - Pericarditis [Recovered/Resolved with Sequelae]
  - Device related infection [Recovered/Resolved]
  - Septic shock [Recovered/Resolved]
  - Chronic obstructive pulmonary disease [Recovered/Resolved]

NARRATIVE: CASE EVENT DATE: 20191201
